FAERS Safety Report 16417047 (Version 2)
Quarter: 2019Q2

REPORT INFORMATION
  Report Type: Spontaneous
  Country: US (occurrence: US)
  Receive Date: 20190611
  Receipt Date: 20190612
  Transmission Date: 20190711
  Serious: Yes (Hospitalization)
  Sender: FDA-Public Use
  Company Number: US-SA-2019SA151793

PATIENT
  Age: 60 Year
  Sex: Male

DRUGS (1)
  1. LANTUS SOLOSTAR [Suspect]
     Active Substance: INSULIN GLARGINE
     Indication: DIABETES MELLITUS
     Dosage: 15 TO 36 U, QD
     Route: 065

REACTIONS (3)
  - Hospitalisation [Recovered/Resolved]
  - Heart rate abnormal [Recovered/Resolved]
  - Blood glucose increased [Recovered/Resolved]
